FAERS Safety Report 24627673 (Version 1)
Quarter: 2024Q4

REPORT INFORMATION
  Report Type: Spontaneous
  Country: PL (occurrence: PL)
  Receive Date: 20241116
  Receipt Date: 20241116
  Transmission Date: 20250115
  Serious: Yes (Other)
  Sender: AMGEN
  Company Number: PL-AMGEN-POLSP2024221729

PATIENT
  Age: 61 Year
  Sex: Male

DRUGS (7)
  1. VECTIBIX [Suspect]
     Active Substance: PANITUMUMAB
     Indication: Adenocarcinoma of colon
     Dosage: UNK
     Route: 065
     Dates: start: 20220218
  2. VECTIBIX [Suspect]
     Active Substance: PANITUMUMAB
     Dosage: UNK, DE-ESCALATION OF VECTIBIX
     Route: 065
     Dates: start: 202301
  3. VECTIBIX [Suspect]
     Active Substance: PANITUMUMAB
     Dosage: UNK, DE-ESCALATION OF VECTIBIX
     Route: 065
     Dates: start: 202306
  4. VECTIBIX [Suspect]
     Active Substance: PANITUMUMAB
     Dosage: UNK
     Route: 065
     Dates: start: 20231021
  5. LEUCOVORIN [Suspect]
     Active Substance: LEUCOVORIN\LEUCOVORIN CALCIUM
     Indication: Adenocarcinoma of colon
     Dosage: UNK
     Route: 065
     Dates: start: 20220218
  6. FLUOROURACIL [Suspect]
     Active Substance: FLUOROURACIL
     Indication: Adenocarcinoma of colon
     Dosage: UNK
     Route: 065
     Dates: start: 20220218
  7. OXALIPLATIN [Suspect]
     Active Substance: OXALIPLATIN
     Indication: Adenocarcinoma of colon
     Dosage: UNK
     Route: 065
     Dates: start: 20220218

REACTIONS (13)
  - Thrombocytopenia [Unknown]
  - Polyneuropathy [Unknown]
  - Therapy partial responder [Unknown]
  - Hypoproteinaemia [Unknown]
  - Conjunctivitis [Unknown]
  - Implant site dehiscence [Unknown]
  - Adenocarcinoma of colon [Unknown]
  - Mucosal toxicity [Unknown]
  - Hypomagnesaemia [Unknown]
  - Rash erythematous [Unknown]
  - Eyelash thickening [Unknown]
  - Skin toxicity [Unknown]
  - Rash pustular [Unknown]

NARRATIVE: CASE EVENT DATE: 20230101
